FAERS Safety Report 9473218 (Version 2)
Quarter: 2013Q3

REPORT INFORMATION
  Report Type: Spontaneous
  Country: US (occurrence: US)
  Receive Date: 20130823
  Receipt Date: 20130823
  Transmission Date: 20140515
  Serious: No
  Sender: FDA-Public Use
  Company Number: US-BRISTOL-MYERS SQUIBB COMPANY-18786970

PATIENT
  Age: 62 Year
  Sex: Male
  Weight: 100.68 kg

DRUGS (8)
  1. SPRYCEL [Suspect]
     Indication: CHRONIC MYELOID LEUKAEMIA
     Dosage: INTER 1 WEEK:22JAN13?RESUME:29JAN13?STOP DATE: UNSURE.
     Route: 048
     Dates: start: 20130108
  2. ASPIRIN [Concomitant]
  3. CRESTOR [Concomitant]
  4. HUMULIN [Concomitant]
  5. LISINOPRIL [Concomitant]
  6. LOVAZA [Concomitant]
  7. METOPROLOL [Concomitant]
  8. XANAX [Concomitant]

REACTIONS (6)
  - Dyspnoea [Unknown]
  - Feeling jittery [Unknown]
  - Fatigue [Unknown]
  - Pharyngeal oedema [Unknown]
  - Hyperventilation [Unknown]
  - Hypogeusia [Unknown]
